FAERS Safety Report 5647980-4 (Version None)
Quarter: 2008Q1

REPORT INFORMATION
  Report Type: 
  Country: None (occurrence: None)
  Receive Date: 20080228
  Receipt Date: 20080213
  Transmission Date: 20080703
  Serious: Yes (Hospitalization)
  Sender: FDA-Public Use
  Company Number: 2008000340

PATIENT
  Age: 45 Year
  Sex: Female
  Weight: 59.8 kg

DRUGS (2)
  1. ERLOTINIB (ERLOTINIB) (TABLET) (ERLOTINIB) [Suspect]
     Indication: GLIOBLASTOMA MULTIFORME
     Dosage: (150 MG, QD), ORAL
     Route: 048
     Dates: start: 20071018, end: 20071114
  2. CCI-779 (TEMSIROLIMUS) (INJECTION FOR INFUSION) [Suspect]
     Dosage: (15 MG, WEEKLY), INTRAVENOUS
     Route: 042
     Dates: end: 20071017

REACTIONS (5)
  - ANEURYSM [None]
  - DISEASE PROGRESSION [None]
  - HYPOALBUMINAEMIA [None]
  - HYPOCALCAEMIA [None]
  - PYREXIA [None]
